FAERS Safety Report 8553508 (Version 2)
Quarter: 2013Q2

REPORT INFORMATION
  Report Type: Spontaneous
  Country: US (occurrence: US)
  Receive Date: 20120509
  Receipt Date: 20130408
  Transmission Date: 20140414
  Serious: Yes (Other)
  Sender: FDA-Public Use
  Company Number: US-ASTRAZENECA-2012SE12804

PATIENT
  Age: 869 Month
  Sex: Female
  Weight: 84.8 kg

DRUGS (6)
  1. SEROQUEL XR [Suspect]
     Indication: BIPOLAR DISORDER
     Route: 048
     Dates: start: 20090101
  2. SEROQUEL XR [Suspect]
     Indication: SLEEP DISORDER
     Route: 048
     Dates: start: 20090101
  3. METOPROLOL SUCCINATE [Suspect]
     Route: 048
  4. MAGNESIUM OXIDE [Concomitant]
  5. DIVALPROEX [Concomitant]
  6. PREVACID [Concomitant]

REACTIONS (16)
  - Retinal haemorrhage [Unknown]
  - Eye disorder [Unknown]
  - Rectal haemorrhage [Unknown]
  - Insomnia [Unknown]
  - Respiratory tract infection [Not Recovered/Not Resolved]
  - Pharyngeal haemorrhage [Unknown]
  - Acute sinusitis [Not Recovered/Not Resolved]
  - Bronchitis [Not Recovered/Not Resolved]
  - Glaucoma [Unknown]
  - Gastroenteritis viral [Unknown]
  - Diarrhoea [Unknown]
  - Malaise [Unknown]
  - Nausea [Unknown]
  - Vomiting [Unknown]
  - Fatigue [Unknown]
  - Intentional drug misuse [Unknown]
